FAERS Safety Report 5352606-3 (Version None)
Quarter: 2007Q2

REPORT INFORMATION
  Report Type: 
  Country: None (occurrence: None)
  Receive Date: 20070611
  Receipt Date: 20070604
  Transmission Date: 20071010
  Serious: Yes (Death)
  Sender: FDA-Public Use
  Company Number: AU-AVENTIS-200714608GDDC

PATIENT
  Age: 60 Year
  Sex: Female

DRUGS (19)
  1. LANTUS [Suspect]
     Dosage: DOSE: UNK
     Dates: start: 20061101, end: 20070131
  2. AUTOPEN INSULIN INJECTION PEN [Suspect]
  3. ASTRIX [Concomitant]
  4. CELEBREX [Concomitant]
  5. FGF                                /00098901/ [Concomitant]
     Dosage: DOSE: 250MG/300MCG
  6. GLUCOSAMINE [Concomitant]
  7. IMDUR [Concomitant]
  8. KARVEA [Concomitant]
  9. LASIX [Concomitant]
  10. METFORMIN HYDROCHLORIDE [Concomitant]
  11. NEO-CYTAMEN [Concomitant]
     Dosage: DOSE QUANTITY: 1; DOSE UNIT: MILLIGRAM PER MILLILITRE
  12. NEXIUM [Concomitant]
  13. NITROLINGUAL PUMPSPRAY [Concomitant]
  14. NOVORAPID [Concomitant]
     Dosage: DOSE: 8/8/10
     Route: 058
  15. PANAMAX [Concomitant]
  16. PERHEXILINE MALEATE [Concomitant]
  17. SERETIDE ACCUHALER [Concomitant]
     Dosage: DOSE: 500 MCG-50 MCG X'S 2
     Route: 055
  18. VENTOLINE                          /00139501/ [Concomitant]
     Dosage: DOSE: 100 MCG 2 PUFFS
     Route: 055
  19. ZOCOR [Concomitant]

REACTIONS (1)
  - CARDIAC ARREST [None]
